FAERS Safety Report 9798691 (Version 2)
Quarter: 2015Q3

REPORT INFORMATION
  Report Type: Spontaneous
  Country: US (occurrence: US)
  Receive Date: 20140106
  Receipt Date: 20150806
  Transmission Date: 20151125
  Serious: No
  Sender: FDA-Public Use
  Company Number: US-GILEAD-2010-0029794

PATIENT
  Age: 59 Year
  Sex: Female

DRUGS (11)
  1. FUROSEMIDE. [Concomitant]
     Active Substance: FUROSEMIDE
  2. KETOCONAZOLE. [Concomitant]
     Active Substance: KETOCONAZOLE
  3. LETAIRIS [Suspect]
     Active Substance: AMBRISENTAN
     Indication: PULMONARY ARTERIAL HYPERTENSION
     Route: 048
     Dates: start: 20100423
  4. PREVACID [Concomitant]
     Active Substance: LANSOPRAZOLE
  5. ASPIRIN. [Concomitant]
     Active Substance: ASPIRIN
  6. NASACORT AQ [Concomitant]
     Active Substance: TRIAMCINOLONE ACETONIDE
  7. AVAPRO [Concomitant]
     Active Substance: IRBESARTAN
  8. LETAIRIS [Suspect]
     Active Substance: AMBRISENTAN
     Route: 048
  9. PROMETHAZINE [Concomitant]
     Active Substance: PROMETHAZINE\PROMETHAZINE HYDROCHLORIDE
  10. PROAIR HFA [Concomitant]
     Active Substance: ALBUTEROL SULFATE
  11. SINGULAIR [Concomitant]
     Active Substance: MONTELUKAST SODIUM

REACTIONS (2)
  - Abdominal distension [Unknown]
  - Peripheral swelling [Unknown]

NARRATIVE: CASE EVENT DATE: 20100601
